FAERS Safety Report 4591990-5 (Version None)
Quarter: 2005Q1

REPORT INFORMATION
  Report Type: 
  Country: None (occurrence: None)
  Receive Date: 20050125
  Receipt Date: 20040908
  Transmission Date: 20050727
  Serious: No
  Sender: FDA-Public Use
  Company Number: USA040874410

PATIENT
  Age: 79 Year
  Sex: Female

DRUGS (3)
  1. FORTEO [Suspect]
     Indication: BONE DISORDER
     Dates: start: 20040402
  2. PREDNISONE [Concomitant]
  3. REMICADE [Concomitant]

REACTIONS (4)
  - BACK PAIN [None]
  - FRACTURE [None]
  - INJECTION SITE HAEMORRHAGE [None]
  - PIGMENTATION DISORDER [None]
